FAERS Safety Report 5124929-4 (Version None)
Quarter: 2006Q4

REPORT INFORMATION
  Report Type: 
  Country: None (occurrence: None)
  Receive Date: 20061006
  Receipt Date: 20060927
  Transmission Date: 20070319
  Serious: Yes (Hospitalization, Other)
  Sender: FDA-Public Use
  Company Number: B0440347A

PATIENT
  Age: 39 Year
  Sex: Male

DRUGS (8)
  1. EPIVIR [Suspect]
     Indication: ACQUIRED IMMUNODEFICIENCY SYNDROME
     Dosage: ORAL
     Route: 048
     Dates: start: 20000311, end: 20051025
  2. STAVUDINE [Suspect]
     Indication: ACQUIRED IMMUNODEFICIENCY SYNDROME
     Dosage: 80 MG PER DAY/ORAL
     Route: 048
     Dates: start: 20000311, end: 20051025
  3. AMMONIUM GLYCYRRHIZATE [Concomitant]
  4. URSODEOXYCHOLIC ACID [Concomitant]
  5. FOSAMPRENAVIR [Concomitant]
  6. TRUVADA [Concomitant]
  7. FLUCONAZOLE [Concomitant]
  8. SAQUINAVIR CAPSULE (SAQUINAVIR) [Suspect]
     Indication: ACQUIRED IMMUNODEFICIENCY SYNDROME
     Dosage: 1.8 GRAM(S)/PER DAY/ORAL
     Route: 048
     Dates: start: 20000311, end: 20051025

REACTIONS (5)
  - ALANINE AMINOTRANSFERASE INCREASED [None]
  - ASPARTATE AMINOTRANSFERASE INCREASED [None]
  - DIABETES MELLITUS [None]
  - GLYCOSYLATED HAEMOGLOBIN INCREASED [None]
  - HEPATIC FUNCTION ABNORMAL [None]
